FAERS Safety Report 24108885 (Version 1)
Quarter: 2024Q3

REPORT INFORMATION
  Report Type: Spontaneous
  Country: US (occurrence: US)
  Receive Date: 20240718
  Receipt Date: 20240718
  Transmission Date: 20241017
  Serious: Yes (Other)
  Sender: BRISTOL MYERS SQUIBB
  Company Number: US-BRISTOL-MYERS SQUIBB COMPANY-2024-108878

PATIENT
  Sex: Male

DRUGS (3)
  1. LENALIDOMIDE [Suspect]
     Active Substance: LENALIDOMIDE
     Indication: Lymphoma
  2. LENALIDOMIDE [Suspect]
     Active Substance: LENALIDOMIDE
  3. MONJUVI [Suspect]
     Active Substance: TAFASITAMAB-CXIX
     Indication: Lymphoma

REACTIONS (3)
  - Platelet count decreased [Recovering/Resolving]
  - Diarrhoea [Unknown]
  - Fatigue [Unknown]
